FAERS Safety Report 18116465 (Version 1)
Quarter: 2020Q3

REPORT INFORMATION
  Report Type: Spontaneous
  Country: FR (occurrence: FR)
  Receive Date: 20200805
  Receipt Date: 20200805
  Transmission Date: 20201103
  Serious: Yes (Other)
  Sender: FDA-Public Use
  Company Number: FR-US-PROVELL PHARMACEUTICALS LLC-E2B_90079171

PATIENT
  Age: 73 Year
  Sex: Female

DRUGS (1)
  1. LEVOTHYROX 75 [Suspect]
     Active Substance: LEVOTHYROXINE
     Indication: POST PROCEDURAL HYPOTHYROIDISM

REACTIONS (6)
  - Feeling abnormal [Unknown]
  - Pain [Unknown]
  - Gait disturbance [Unknown]
  - Alopecia [Unknown]
  - Rheumatoid arthritis [Not Recovered/Not Resolved]
  - Skin wrinkling [Unknown]

NARRATIVE: CASE EVENT DATE: 2017
